FAERS Safety Report 22268507 (Version 3)
Quarter: 2023Q4

REPORT INFORMATION
  Report Type: Other
  Country: CN (occurrence: None)
  Receive Date: 20230430
  Receipt Date: 20231228
  Transmission Date: 20240110
  Serious: Yes (Other)
  Sender: FDA-Public Use
  Company Number: CN-ROCHE-1930798

PATIENT
  Age: 73 Year
  Sex: Female
  Weight: 55 kg

DRUGS (2)
  1. AVASTIN [Suspect]
     Active Substance: BEVACIZUMAB
     Indication: Colorectal cancer
     Route: 041
     Dates: start: 20160906
  2. AVASTIN [Suspect]
     Active Substance: BEVACIZUMAB
     Indication: Colon cancer
     Route: 041
     Dates: start: 20170322

REACTIONS (23)
  - Pericardial effusion [Not Recovered/Not Resolved]
  - Pneumonitis [Not Recovered/Not Resolved]
  - Abdominal discomfort [Unknown]
  - Hypertension [Unknown]
  - Injury [Unknown]
  - Fall [Unknown]
  - Nasopharyngitis [Unknown]
  - Vomiting [Unknown]
  - Decreased appetite [Unknown]
  - White blood cell count decreased [Recovering/Resolving]
  - Ill-defined disorder [Unknown]
  - Blister [Unknown]
  - Movement disorder [Unknown]
  - Cough [Unknown]
  - General physical health deterioration [Unknown]
  - Nasopharyngitis [Unknown]
  - Joint injury [Unknown]
  - Ill-defined disorder [Unknown]
  - Ligament sprain [Unknown]
  - Cough [Unknown]
  - Nasopharyngitis [Unknown]
  - Gastrointestinal wall thickening [Not Recovered/Not Resolved]
  - Arterial disorder [Not Recovered/Not Resolved]

NARRATIVE: CASE EVENT DATE: 20191201
